FAERS Safety Report 7787153-2 (Version None)
Quarter: 2011Q3

REPORT INFORMATION
  Report Type: 
  Country: None (occurrence: None)
  Receive Date: 20110929
  Receipt Date: 20110715
  Transmission Date: 20111222
  Serious: No
  Sender: FDA-Public Use
  Company Number: US-BAYER-2011-064240

PATIENT
  Age: 74 Year
  Sex: Female

DRUGS (3)
  1. ALEVE (CAPLET) [Suspect]
     Indication: ANALGESIC THERAPY
     Route: 048
  2. PERCOCET [Concomitant]
     Indication: ANALGESIC THERAPY
  3. ROXICET [Concomitant]
     Indication: ANALGESIC THERAPY

REACTIONS (1)
  - PAIN [None]
